FAERS Safety Report 9278653 (Version 2)
Quarter: 2013Q2

REPORT INFORMATION
  Report Type: Spontaneous
  Country: US (occurrence: None)
  Receive Date: 20130501
  Receipt Date: 20130531
  Transmission Date: 20140414
  Serious: Yes (Other)
  Sender: FDA-Public Use
  Company Number: JPI-P-031412

PATIENT
  Age: 52 Year
  Sex: Female
  Weight: 65.32 kg

DRUGS (1)
  1. XYREM (500 MILLIGRAM/MILLILITERS, SOLUTION) (SODIUM OXYBATE) [Suspect]
     Indication: PRODUCT USED FOR UNKNOWN INDICATION
     Route: 048
     Dates: start: 201007

REACTIONS (10)
  - Hepatitis C [None]
  - Hepatic cirrhosis [None]
  - Memory impairment [None]
  - Fatigue [None]
  - Hypersomnia [None]
  - Ankle operation [None]
  - Blood cholesterol increased [None]
  - Blood triglycerides increased [None]
  - Weight decreased [None]
  - Decreased appetite [None]
